FAERS Safety Report 8439222 (Version 2)
Quarter: 2013Q4

REPORT INFORMATION
  Report Type: Spontaneous
  Country: US (occurrence: None)
  Receive Date: 20120126
  Receipt Date: 20131226
  Transmission Date: 20140711
  Serious: Yes (Other)
  Sender: FDA-Public Use
  Company Number: PHEH2011US011479

PATIENT
  Age: 10 Year
  Sex: Female
  Weight: 70.3 kg

DRUGS (17)
  1. AFINITOR [Suspect]
     Indication: TUBEROUS SCLEROSIS
     Dosage: 5 MG, DAILY
     Dates: start: 20110826
  2. ZANTAC [Concomitant]
  3. PREVACID [Concomitant]
  4. IRON [Concomitant]
  5. CLONAZEPAM [Concomitant]
  6. RISPERDAL [Concomitant]
  7. LORATADINE SINGULAR [Concomitant]
  8. DIASTAT [Concomitant]
  9. RUFINAMIDE [Concomitant]
  10. GUANFACINE [Concomitant]
  11. SABRIL (VIGABATRIN) [Concomitant]
  12. LAMICTAL (LAMOTRIGINE) [Concomitant]
  13. VITAMIN B COMPLEX (CALCIUM PANTOTHENATE, NICOTINAMIDE, PYRIDOXINE HYDROCHLORIDE, RIBOFLAVIN, THIAMINE HYDROCHLORIDE) [Concomitant]
  14. OMEGA 3 (FISH OIL) [Concomitant]
  15. SINGULAIR (MONTELUKAST) 10MG [Concomitant]
  16. MIDAZOLAM (MIDAZOLAM) [Concomitant]
  17. MULTI-VIT (VITAMINS NOS) [Concomitant]

REACTIONS (6)
  - Ear infection [None]
  - Convulsion [None]
  - Concomitant disease progression [None]
  - Pneumonia [None]
  - Weight increased [None]
  - Drug level decreased [None]
